FAERS Safety Report 20931299 (Version 1)
Quarter: 2022Q2

REPORT INFORMATION
  Report Type: Spontaneous
  Country: US (occurrence: US)
  Receive Date: 20220608
  Receipt Date: 20220608
  Transmission Date: 20220720
  Serious: No
  Sender: FDA-Public Use
  Company Number: US-GALDERMA-US2022006993

PATIENT

DRUGS (14)
  1. PROACTIV MD ADAPALENE ACNE TREATMENT [Suspect]
     Active Substance: ADAPALENE
     Indication: Skin hyperpigmentation
     Dosage: 1 DOSAGE FORM, BID, MORNING AND NIGHT
     Route: 061
     Dates: start: 202205, end: 202205
  2. PROACTIV MD ADAPALENE ACNE TREATMENT [Suspect]
     Active Substance: ADAPALENE
     Dosage: 1 DOSAGE FORM, BID, MORNING AND NIGHT
     Route: 061
     Dates: start: 202205, end: 20220513
  3. Proactiv MD Ultra Hydrating Moisturizer [Concomitant]
     Indication: Skin hyperpigmentation
     Dosage: 1 DOSAGE FORM, BID, 2 OR MORE TIMES A DAY
     Route: 061
     Dates: start: 202205, end: 202205
  4. Proactiv MD Ultra Hydrating Moisturizer [Concomitant]
     Dosage: 1 DOSAGE FORM, BID, 2 OR MORE TIMES A DAY
     Route: 061
     Dates: start: 202205, end: 20220513
  5. Proactiv MD Ultra Gentle Cleanser [Concomitant]
     Indication: Skin hyperpigmentation
     Dosage: 1 DOSAGE FORM, BID, 2 OR MORE TIMES A DAY
     Route: 061
     Dates: start: 202205, end: 202205
  6. Proactiv MD Ultra Gentle Cleanser [Concomitant]
     Dosage: 1 DOSAGE FORM, BID, 2 OR MORE TIMES A DAY
     Route: 061
     Dates: start: 202205, end: 20220513
  7. Proactiv Amazonian Clay Mask [Concomitant]
     Indication: Skin hyperpigmentation
     Dosage: 1 DOSAGE FORM, BID, 2 OR MORE TIMES A DAY
     Route: 061
     Dates: start: 202205, end: 202205
  8. Proactiv Amazonian Clay Mask [Concomitant]
     Dosage: 1 DOSAGE FORM, BID, 2 OR MORE TIMES A DAY
     Route: 061
     Dates: start: 202205, end: 20220513
  9. PROACTIV ACNE BODY WASH [Concomitant]
     Active Substance: SALICYLIC ACID
     Indication: Skin hyperpigmentation
     Dosage: 1 DOSAGE FORM, BID, 2 OR MORE TIMES A DAY
     Route: 061
     Dates: start: 202205, end: 202205
  10. PROACTIV ACNE BODY WASH [Concomitant]
     Active Substance: SALICYLIC ACID
     Dosage: 1 DOSAGE FORM, BID, 2 OR MORE TIMES A DAY
     Route: 061
     Dates: start: 202205, end: 20220513
  11. Proactiv Post Acne Scar Gel [Concomitant]
     Indication: Skin hyperpigmentation
     Dosage: 1 DOSAGE FORM, BID, 2 OR MORE TIMES A DAY
     Route: 061
     Dates: start: 202205, end: 202205
  12. Proactiv Post Acne Scar Gel [Concomitant]
     Dosage: 1 DOSAGE FORM, BID, 2 OR MORE TIMES A DAY
     Route: 061
     Dates: start: 202205, end: 20220513
  13. VITAMINS [Concomitant]
     Active Substance: VITAMINS
     Indication: Product used for unknown indication
     Route: 065
  14. PROBIOTICS NOS [Concomitant]
     Active Substance: PROBIOTICS NOS
     Indication: Product used for unknown indication
     Route: 065

REACTIONS (7)
  - Skin exfoliation [Recovered/Resolved]
  - Skin burning sensation [Recovered/Resolved]
  - Skin fissures [Recovered/Resolved]
  - Dry skin [Recovered/Resolved]
  - Product use in unapproved indication [Recovered/Resolved]
  - Overdose [Recovered/Resolved]
  - Inappropriate schedule of product administration [Recovered/Resolved]

NARRATIVE: CASE EVENT DATE: 20220501
